FAERS Safety Report 18913062 (Version 1)
Quarter: 2021Q1

REPORT INFORMATION
  Report Type: Spontaneous
  Country: ES (occurrence: ES)
  Receive Date: 20210219
  Receipt Date: 20210219
  Transmission Date: 20210420
  Serious: Yes (Other)
  Sender: FDA-Public Use
  Company Number: ES-ALKEM LABORATORIES LIMITED-ES-ALKEM-2020-06418

PATIENT
  Age: 70 Year
  Sex: Male

DRUGS (3)
  1. LINEZOLID. [Suspect]
     Active Substance: LINEZOLID
     Indication: SUPERINFECTION BACTERIAL
     Dosage: UNK
     Route: 065
  2. CIPROFLOXACIN. [Concomitant]
     Active Substance: CIPROFLOXACIN
     Indication: SUPERINFECTION BACTERIAL
     Dosage: UNK
     Route: 065
  3. METRONIDAZOLE. [Concomitant]
     Active Substance: METRONIDAZOLE
     Indication: SUPERINFECTION BACTERIAL
     Dosage: UNK
     Route: 065

REACTIONS (1)
  - Platelet count decreased [Recovered/Resolved]
